FAERS Safety Report 8859140 (Version 2)
Quarter: 2012Q4

REPORT INFORMATION
  Report Type: 
  Country: US (occurrence: US)
  Receive Date: 20121024
  Receipt Date: 20121108
  Transmission Date: 20130627
  Serious: Yes (Death)
  Sender: FDA-Public Use
  Company Number: US-CELGENEUS-163-21880-12102764

PATIENT
  Sex: Male

DRUGS (2)
  1. REVLIMID [Suspect]
     Indication: MULTIPLE MYELOMA
     Dosage: 25 Milligram
     Route: 048
     Dates: start: 201207, end: 2012
  2. XTANDI [Concomitant]
     Indication: DRUG USE FOR UNKNOWN INDICATION
     Dosage: 160 Milligram
     Route: 048

REACTIONS (1)
  - Plasma cell myeloma [Fatal]
